FAERS Safety Report 12154540 (Version 1)
Quarter: 2016Q1

REPORT INFORMATION
  Report Type: Spontaneous
  Country: None (occurrence: None)
  Receive Date: 20160304
  Receipt Date: 20160304
  Transmission Date: 20160526
  Serious: No
  Sender: FDA-Public Use
  Company Number: None

PATIENT
  Age: 55 Year
  Sex: Male
  Weight: 110 kg

DRUGS (1)
  1. ALTEPLASE [Suspect]
     Active Substance: ALTEPLASE
     Indication: CEREBRAL INFARCTION
     Dates: start: 20160301, end: 20160301

REACTIONS (3)
  - Tachycardia [None]
  - Angioedema [None]
  - Respiratory distress [None]

NARRATIVE: CASE EVENT DATE: 20160301
